FAERS Safety Report 10480229 (Version 1)
Quarter: 2014Q3

REPORT INFORMATION
  Report Type: Report from Study
  Country: US (occurrence: US)
  Receive Date: 20140929
  Receipt Date: 20140929
  Transmission Date: 20150326
  Serious: Yes (Other)
  Sender: FDA-Public Use
  Company Number: US-ROCHE-1466472

PATIENT
  Age: 14 Year
  Sex: Male
  Weight: 57 kg

DRUGS (8)
  1. ASTELIN [Concomitant]
     Active Substance: AZELASTINE HYDROCHLORIDE
  2. CIPRO [Concomitant]
     Active Substance: CIPROFLOXACIN HYDROCHLORIDE
  3. NORDITROPIN [Concomitant]
     Active Substance: SOMATROPIN
     Route: 058
  4. NASONEX [Concomitant]
     Active Substance: MOMETASONE FUROATE
  5. NUTROPIN AQ [Suspect]
     Active Substance: SOMATROPIN
     Indication: BODY HEIGHT BELOW NORMAL
     Route: 058
  6. NUTROPIN AQ [Suspect]
     Active Substance: SOMATROPIN
     Route: 058
  7. PULMOZYME [Suspect]
     Active Substance: DORNASE ALFA
     Indication: PRODUCT USED FOR UNKNOWN INDICATION
     Route: 065
  8. CREON [Concomitant]
     Active Substance: PANCRELIPASE AMYLASE\PANCRELIPASE LIPASE\PANCRELIPASE PROTEASE

REACTIONS (15)
  - Flatulence [Unknown]
  - Delayed puberty [Unknown]
  - Oropharyngeal pain [Unknown]
  - Obstructive airways disorder [Unknown]
  - Growth retardation [Unknown]
  - Steatorrhoea [Unknown]
  - Bronchial hyperreactivity [Unknown]
  - Nasal oedema [Unknown]
  - Nasal polyps [Unknown]
  - Epiphyses delayed fusion [Unknown]
  - Drug dose omission [Unknown]
  - Aggression [Unknown]
  - Growth hormone deficiency [Unknown]
  - Abnormal behaviour [Unknown]
  - Vitamin D deficiency [Unknown]

NARRATIVE: CASE EVENT DATE: 2011
